FAERS Safety Report 8602474-9 (Version None)
Quarter: 2012Q3

REPORT INFORMATION
  Report Type: 
  Country: None (occurrence: None)
  Receive Date: 20120817
  Receipt Date: 20120807
  Transmission Date: 20120928
  Serious: Yes (Hospitalization, Other)
  Sender: FDA-Public Use
  Company Number: AU-CELGENEUS-008-50794-12041852

PATIENT
  Sex: Male
  Weight: 92 kg

DRUGS (3)
  1. VIDAZA [Suspect]
     Dosage: 164 MILLIGRAM
     Route: 058
     Dates: start: 20120314, end: 20120327
  2. WHOLE BLOOD [Concomitant]
     Route: 041
  3. VIDAZA [Suspect]
     Dosage: 164 MILLIGRAM
     Route: 058
     Dates: start: 20120416, end: 20120424

REACTIONS (4)
  - ANAL HAEMORRHAGE [None]
  - FEBRILE NEUTROPENIA [None]
  - HAEMOLYSIS [None]
  - EPISTAXIS [None]
